FAERS Safety Report 12676100 (Version 2)
Quarter: 2016Q3

REPORT INFORMATION
  Report Type: Report from Study
  Country: MX (occurrence: MX)
  Receive Date: 20160823
  Receipt Date: 20160907
  Transmission Date: 20161109
  Serious: Yes (Other)
  Sender: FDA-Public Use
  Company Number: PHHY2016MX114374

PATIENT
  Age: 4 Year
  Sex: Female
  Weight: 45 kg

DRUGS (2)
  1. TRILEPTAL [Suspect]
     Active Substance: OXCARBAZEPINE
     Indication: SEIZURE
     Dosage: 3 ML, QD
     Route: 048
     Dates: start: 201204
  2. TRILEPTAL [Suspect]
     Active Substance: OXCARBAZEPINE
     Indication: ENCEPHALITIS BRAIN STEM
     Dosage: 14 ML, QD (8 MONTHS AGO)
     Route: 048

REACTIONS (3)
  - Precocious puberty [Not Recovered/Not Resolved]
  - Product use issue [Not Recovered/Not Resolved]
  - Lupus-like syndrome [Not Recovered/Not Resolved]

NARRATIVE: CASE EVENT DATE: 201204
